FAERS Safety Report 8809471 (Version 1)
Quarter: 2012Q4

REPORT INFORMATION
  Report Type: 
  Country: US (occurrence: US)
  Receive Date: 20120926
  Receipt Date: 20120926
  Transmission Date: 20130627
  Serious: Yes (Other)
  Sender: FDA-Public Use
  Company Number: PHEH2012US018471

PATIENT
  Sex: Female

DRUGS (5)
  1. EXELON PATCH [Suspect]
     Dosage: 9.5 mg (18 mg/10cm2), UNK
     Route: 062
  2. CALCIUM [Concomitant]
  3. FISH OIL [Concomitant]
  4. ATENOLOL [Concomitant]
  5. ACETYLSALICYLIC ACID [Concomitant]

REACTIONS (4)
  - Breast cancer [Unknown]
  - Application site pruritus [Unknown]
  - Application site swelling [Unknown]
  - Application site reaction [Unknown]
